FAERS Safety Report 19756351 (Version 3)
Quarter: 2021Q4

REPORT INFORMATION
  Report Type: Report from Study
  Country: US (occurrence: US)
  Receive Date: 20210827
  Receipt Date: 20211124
  Transmission Date: 20220303
  Serious: Yes (Hospitalization, Other)
  Sender: FDA-Public Use
  Company Number: US-JNJFOC-20210837307

PATIENT
  Age: 24 Year
  Sex: Male
  Weight: 102.15 kg

DRUGS (7)
  1. SPRAVATO [Suspect]
     Active Substance: ESKETAMINE
     Indication: Depression
     Dosage: 56 MG, 1 TOTAL DOSE
     Dates: start: 20210420, end: 20210420
  2. SPRAVATO [Suspect]
     Active Substance: ESKETAMINE
     Dosage: 84 MG, 16 TOTAL DOSES
     Dates: start: 20210424, end: 20210526
  3. SPRAVATO [Suspect]
     Active Substance: ESKETAMINE
     Dosage: 56 MG, 1 TOTAL DOSE
     Dates: start: 20210601, end: 20210601
  4. SPRAVATO [Suspect]
     Active Substance: ESKETAMINE
     Dosage: TOTAL 5 DOSES
     Dates: start: 20210603, end: 20210924
  5. ZOLOFT [Concomitant]
     Active Substance: SERTRALINE HYDROCHLORIDE
     Dates: start: 202108, end: 202109
  6. PROPRANOLOL [Concomitant]
     Active Substance: PROPRANOLOL HYDROCHLORIDE
     Dates: start: 202108
  7. BUPROPION [Concomitant]
     Active Substance: BUPROPION
     Dates: start: 202105, end: 202109

REACTIONS (2)
  - Depression [Recovering/Resolving]
  - Product dose omission issue [Unknown]
